FAERS Safety Report 20669119 (Version 1)
Quarter: 2022Q2

REPORT INFORMATION
  Report Type: Spontaneous
  Country: US (occurrence: None)
  Receive Date: 20220402
  Receipt Date: 20220402
  Transmission Date: 20220721
  Serious: No
  Sender: FDA-Public Use
  Company Number: None

PATIENT
  Age: 84 Year
  Sex: Female
  Weight: 63 kg

DRUGS (1)
  1. TRELEGY ELLIPTA [Suspect]
     Active Substance: FLUTICASONE FUROATE\UMECLIDINIUM BROMIDE\VILANTEROL TRIFENATATE
     Indication: Respiration abnormal
     Dosage: OTHER QUANTITY : 1 PUFF(S);?FREQUENCY : DAILY;?
     Route: 055

REACTIONS (3)
  - Nervousness [None]
  - Nervousness [None]
  - Tremor [None]

NARRATIVE: CASE EVENT DATE: 20220318
